FAERS Safety Report 15833035 (Version 1)
Quarter: 2018Q4

REPORT INFORMATION
  Report Type: Spontaneous
  Country: US (occurrence: US)
  Receive Date: 20181219
  Receipt Date: 20181219
  Transmission Date: 20190205
  Serious: Yes (Hospitalization)
  Sender: FDA-Public Use
  Company Number: None

PATIENT
  Age: 32 Year
  Sex: Male
  Weight: 69.4 kg

DRUGS (10)
  1. NALOXONE [Concomitant]
     Active Substance: NALOXONE
  2. ETOH [Suspect]
     Active Substance: ALCOHOL
  3. METHADONE [Concomitant]
     Active Substance: METHADONE HYDROCHLORIDE
  4. ZALEPLON. [Concomitant]
     Active Substance: ZALEPLON
  5. CLONZAEPAM [Concomitant]
  6. GABAPENTIN. [Concomitant]
     Active Substance: GABAPENTIN
  7. LORATADINE. [Concomitant]
     Active Substance: LORATADINE
  8. TAMSULOSIN [Concomitant]
     Active Substance: TAMSULOSIN
  9. HARVONI [Suspect]
     Active Substance: LEDIPASVIR\SOFOSBUVIR
     Indication: HEPATITIS C
     Route: 048
     Dates: start: 20170921, end: 20171213
  10. DEXTROAMPHETAINE [Concomitant]

REACTIONS (2)
  - Seizure [None]
  - Alcohol withdrawal syndrome [None]

NARRATIVE: CASE EVENT DATE: 20170924
